FAERS Safety Report 17187025 (Version 2)
Quarter: 2019Q4

REPORT INFORMATION
  Report Type: Spontaneous
  Country: FR (occurrence: FR)
  Receive Date: 20191220
  Receipt Date: 20191231
  Transmission Date: 20200122
  Serious: Yes (Other)
  Sender: FDA-Public Use
  Company Number: FR-JNJFOC-20191225754

PATIENT
  Age: 69 Year
  Sex: Female
  Weight: 52 kg

DRUGS (8)
  1. SIMPONI [Suspect]
     Active Substance: GOLIMUMAB
     Indication: RHEUMATOID ARTHRITIS
     Route: 058
     Dates: start: 20121119, end: 20190830
  2. ARCOXIA [Concomitant]
     Active Substance: ETORICOXIB
     Indication: RHEUMATOID ARTHRITIS
     Route: 065
     Dates: start: 2012
  3. DOLIPRANE [Concomitant]
     Active Substance: ACETAMINOPHEN
     Indication: RHEUMATOID ARTHRITIS
     Dosage: 1 TAB THREE TIMES PER DAY IF REQUIRED
     Route: 065
  4. FIXICAL [Concomitant]
     Active Substance: CALCIUM CARBONATE
     Indication: OSTEOPOROSIS
     Route: 065
     Dates: start: 201711
  5. LEVOTHYROXINE. [Concomitant]
     Active Substance: LEVOTHYROXINE
     Indication: HYPOTHYROIDISM
     Dosage: 100 MICROGRAMS
     Route: 065
  6. CHOLECALCIFEROL [Concomitant]
     Active Substance: CHOLECALCIFEROL
     Indication: OSTEOPOROSIS
     Route: 065
  7. IMETH                              /00113801/ [Concomitant]
     Active Substance: METHOTREXATE
     Indication: RHEUMATOID ARTHRITIS
     Route: 065
     Dates: start: 2012
  8. SPECIAFOLDINE [Concomitant]
     Active Substance: FOLIC ACID
     Indication: RHEUMATOID ARTHRITIS
     Route: 065
     Dates: start: 2012

REACTIONS (1)
  - Breast cancer recurrent [Unknown]

NARRATIVE: CASE EVENT DATE: 201907
